FAERS Safety Report 10383634 (Version 3)
Quarter: 2015Q1

REPORT INFORMATION
  Report Type: Report from Study
  Country: CA (occurrence: CA)
  Receive Date: 20140814
  Receipt Date: 20150113
  Transmission Date: 20150720
  Serious: Yes (Other)
  Sender: FDA-Public Use
  Company Number: CA-BRISTOL-MYERS SQUIBB COMPANY-21297205

PATIENT
  Sex: Female

DRUGS (6)
  1. TRUVADA [Concomitant]
     Active Substance: EMTRICITABINE\TENOFOVIR DISOPROXIL FUMARATE
  2. FOLIC ACID. [Concomitant]
     Active Substance: FOLIC ACID
  3. METHOTREXATE [Concomitant]
     Active Substance: METHOTREXATE
  4. VITAMIN D [Concomitant]
     Active Substance: CHOLECALCIFEROL
  5. ABATACEPT [Suspect]
     Active Substance: ABATACEPT
     Indication: RHEUMATOID ARTHRITIS
     Dosage: BATCH NO. 4C89733  EXP. AUG16
     Route: 042
     Dates: start: 20121026
  6. TRAVATAN [Concomitant]
     Active Substance: TRAVOPROST

REACTIONS (1)
  - Glaucoma [Unknown]
